FAERS Safety Report 14942949 (Version 1)
Quarter: 2018Q2

REPORT INFORMATION
  Report Type: Spontaneous
  Country: IT (occurrence: IT)
  Receive Date: 20180528
  Receipt Date: 20180528
  Transmission Date: 20180711
  Serious: Yes (Other)
  Sender: FDA-Public Use
  Company Number: IT-TEVA-2018-IT-895419

PATIENT
  Age: 1 Year
  Sex: Female
  Weight: 14 kg

DRUGS (1)
  1. AMOXICILLIN. [Suspect]
     Active Substance: AMOXICILLIN
     Indication: PHARYNGOTONSILLITIS
     Dosage: 15 ML DAILY;
     Route: 048
     Dates: start: 20170713, end: 20170715

REACTIONS (1)
  - Erythema [Recovering/Resolving]

NARRATIVE: CASE EVENT DATE: 20170715
